FAERS Safety Report 15689996 (Version 2)
Quarter: 2018Q4

REPORT INFORMATION
  Report Type: Report from Study
  Country: MX (occurrence: MX)
  Receive Date: 20181205
  Receipt Date: 20181228
  Transmission Date: 20190205
  Serious: Yes (Other)
  Sender: FDA-Public Use
  Company Number: MX-SHIRE-MX201846294

PATIENT

DRUGS (1)
  1. ELAPRASE [Suspect]
     Active Substance: IDURSULFASE
     Indication: MUCOPOLYSACCHARIDOSIS II
     Dosage: STRENGTH 6MG/3ML, 1X/WEEK
     Route: 042
     Dates: start: 201306

REACTIONS (3)
  - Influenza [Unknown]
  - Hypokinesia [Unknown]
  - Pyrexia [Unknown]
